FAERS Safety Report 12718027 (Version 1)
Quarter: 2016Q3

REPORT INFORMATION
  Report Type: Spontaneous
  Country: CN (occurrence: CN)
  Receive Date: 20160906
  Receipt Date: 20160906
  Transmission Date: 20161109
  Serious: Yes (Hospitalization)
  Sender: FDA-Public Use
  Company Number: CN-MYLANLABS-2016M1037461

PATIENT

DRUGS (1)
  1. CALCITONIN SALMON. [Suspect]
     Active Substance: CALCITONIN SALMON
     Indication: ANKLE FRACTURE
     Dosage: 50 IU, QD
     Route: 030
     Dates: start: 20160601, end: 20160601

REACTIONS (4)
  - Nausea [Recovering/Resolving]
  - Chills [Recovering/Resolving]
  - Vomiting [Recovering/Resolving]
  - Tremor [Recovering/Resolving]

NARRATIVE: CASE EVENT DATE: 20160601
